FAERS Safety Report 7330195-1 (Version None)
Quarter: 2011Q1

REPORT INFORMATION
  Report Type: 
  Country: None (occurrence: None)
  Receive Date: 20110303
  Receipt Date: 20110223
  Transmission Date: 20110831
  Serious: Yes (Other)
  Sender: FDA-Public Use
  Company Number: US-MERCK-1103USA00231

PATIENT
  Age: 45 Year
  Sex: Female

DRUGS (7)
  1. DECADRON [Suspect]
     Indication: MULTIPLE MYELOMA
     Route: 048
  2. CISPLATIN [Concomitant]
     Indication: MULTIPLE MYELOMA
     Route: 065
  3. BORTEZOMIB [Concomitant]
     Indication: MULTIPLE MYELOMA
     Route: 065
  4. ETOPOSIDE [Concomitant]
     Indication: MULTIPLE MYELOMA
     Route: 065
  5. THALIDOMIDE [Concomitant]
     Indication: MULTIPLE MYELOMA
     Route: 065
  6. DOXORUBICIN [Concomitant]
     Indication: MULTIPLE MYELOMA
     Route: 065
  7. CYCLOPHOSPHAMIDE [Concomitant]
     Indication: MULTIPLE MYELOMA
     Route: 065

REACTIONS (1)
  - HUMERUS FRACTURE [None]
